FAERS Safety Report 16058403 (Version 2)
Quarter: 2019Q2

REPORT INFORMATION
  Report Type: Spontaneous
  Country: DE (occurrence: DE)
  Receive Date: 20190311
  Receipt Date: 20190408
  Transmission Date: 20190711
  Serious: Yes (Life-Threatening, Other)
  Sender: FDA-Public Use
  Company Number: DE-BRISTOL-MYERS SQUIBB COMPANY-BMS-2019-024182

PATIENT
  Age: 65 Year
  Sex: Female
  Weight: 51 kg

DRUGS (2)
  1. L-THYROX [Concomitant]
     Active Substance: LEVOTHYROXINE SODIUM
     Indication: HYPOTHYROIDISM
     Dosage: 125 ABSENT, QD
     Route: 065
  2. ELIQUIS [Suspect]
     Active Substance: APIXABAN
     Indication: DEEP VEIN THROMBOSIS
     Dosage: 5 MILLIGRAM, BID
     Route: 065
     Dates: start: 201812

REACTIONS (6)
  - Ischaemic stroke [Unknown]
  - Prescribed underdose [Unknown]
  - Pelvic venous thrombosis [Unknown]
  - Pulmonary embolism [Unknown]
  - Blindness unilateral [Unknown]
  - Bronchial neoplasm [Unknown]

NARRATIVE: CASE EVENT DATE: 201901
